FAERS Safety Report 23626967 (Version 1)
Quarter: 2024Q1

REPORT INFORMATION
  Report Type: Report from Study
  Country: US (occurrence: US)
  Receive Date: 20240313
  Receipt Date: 20240313
  Transmission Date: 20240410
  Serious: No
  Sender: FDA-Public Use
  Company Number: US-SPRINGWORKS THERAPEUTICS-SW-000981

PATIENT
  Age: 13 Year
  Sex: Female
  Weight: 67 kg

DRUGS (1)
  1. NIROGACESTAT [Suspect]
     Active Substance: NIROGACESTAT
     Indication: Desmoid tumour
     Dosage: 150 MILLIGRAM, BID
     Route: 048
     Dates: start: 20221206

REACTIONS (1)
  - Ovarian failure [Not Recovered/Not Resolved]

NARRATIVE: CASE EVENT DATE: 20230314
